FAERS Safety Report 10108784 (Version 3)
Quarter: 2014Q2

REPORT INFORMATION
  Report Type: Report from Study
  Country: US (occurrence: US)
  Receive Date: 20140425
  Receipt Date: 20140610
  Transmission Date: 20141212
  Serious: Yes (Death)
  Sender: FDA-Public Use
  Company Number: US-ROCHE-1388571

PATIENT
  Age: 14 Year
  Sex: Male

DRUGS (2)
  1. NUTROPIN AQ [Suspect]
     Indication: NOONAN SYNDROME
     Route: 058
  2. NUTROPIN AQ [Suspect]
     Dosage: QHS
     Route: 058
     Dates: start: 201005

REACTIONS (1)
  - Death [Fatal]
